FAERS Safety Report 7809953-2 (Version None)
Quarter: 2011Q4

REPORT INFORMATION
  Report Type: 
  Country: None (occurrence: None)
  Receive Date: 20111012
  Receipt Date: 20111007
  Transmission Date: 20120403
  Serious: Yes (Hospitalization)
  Sender: FDA-Public Use
  Company Number: US-PFIZER INC-2011240879

PATIENT
  Sex: Female
  Weight: 85.714 kg

DRUGS (17)
  1. DELTASONE [Concomitant]
     Dosage: 10 MG, 3X/DAY
     Route: 048
     Dates: start: 20110902, end: 20110904
  2. CELEXA [Concomitant]
     Dosage: 40 MG, 1X/DAY
     Route: 048
     Dates: end: 20110830
  3. COZAAR [Concomitant]
     Dosage: 50 MG, 1 IN 1 D
     Route: 048
  4. ZOCOR [Concomitant]
     Dosage: 40 MG,Q HS L IN 1 D
     Route: 048
  5. ZOLOFT [Suspect]
     Dosage: 50 MG, DAILY
     Route: 048
     Dates: start: 20110830
  6. DELTASONE [Concomitant]
     Dosage: 20 MG, 3X/DAY
     Route: 048
     Dates: start: 20110830, end: 20110901
  7. NORVASC [Concomitant]
     Dosage: 2.5 MG, 1X/DAY
     Route: 048
  8. PERFOROMIST [Concomitant]
     Dosage: 2 ML, 2X/DAY
  9. MULTI-VITAMINS [Concomitant]
     Dosage: UNK
  10. DELTASONE [Concomitant]
     Dosage: 30 MG, 3X/DAY
     Route: 048
     Dates: start: 20110827, end: 20110829
  11. PRILOSEC [Concomitant]
     Dosage: 20 MG, 2X/DAY, 2 IN 1 D
     Route: 048
  12. ASPIRIN [Concomitant]
     Dosage: UNK
  13. DALIRESP [Suspect]
     Indication: CHRONIC OBSTRUCTIVE PULMONARY DISEASE
     Dosage: 500 UG, L IN 1 D
     Route: 048
     Dates: start: 20110824, end: 20110923
  14. DELTASONE [Concomitant]
     Indication: CHRONIC OBSTRUCTIVE PULMONARY DISEASE
     Dosage: 40 MG, 3X/DAY
     Route: 048
     Dates: start: 20110824, end: 20110826
  15. PROVENTIL-HFA [Concomitant]
     Dosage: 2 PUFFS (108 MCG/ACT) PRN EVERY 4 HOURS
  16. ASCORBIC ACID [Concomitant]
     Dosage: UNK
  17. BUDESONIDE [Concomitant]
     Dosage: 0.5 MG/2 ML, 2X/DAY

REACTIONS (8)
  - DECREASED APPETITE [None]
  - TREMOR [None]
  - NAUSEA [None]
  - DIARRHOEA [None]
  - VOMITING [None]
  - DYSPNOEA [None]
  - FEAR [None]
  - MOOD ALTERED [None]
